FAERS Safety Report 9143083 (Version 2)
Quarter: 2013Q2

REPORT INFORMATION
  Report Type: Report from Study
  Country: FR (occurrence: FR)
  Receive Date: 20130306
  Receipt Date: 20130426
  Transmission Date: 20140414
  Serious: Yes (Other)
  Sender: FDA-Public Use
  Company Number: FR-ASTELLAS-2013US002444

PATIENT
  Sex: 0

DRUGS (3)
  1. ERLOTINIB TABLET [Suspect]
     Indication: PANCREATIC CARCINOMA
     Dosage: 75 MG, UID/QD
     Route: 048
  2. CAPECITABINE [Suspect]
     Indication: PANCREATIC CARCINOMA
     Dosage: 830 MG/M2, DAY 1 + 21
     Route: 048
  3. GEMCITABINE [Suspect]
     Indication: PANCREATIC CARCINOMA
     Dosage: 1000 MG/M2, 1000 MG, ON DAY 1, 8 AND 15 OF A 28 DAY CYCLE
     Route: 042

REACTIONS (2)
  - Incorrect dose administered [Unknown]
  - Gastrointestinal disorder [Unknown]
